FAERS Safety Report 17279450 (Version 1)
Quarter: 2020Q1

REPORT INFORMATION
  Report Type: Spontaneous
  Country: US (occurrence: US)
  Receive Date: 20200116
  Receipt Date: 20200116
  Transmission Date: 20200409
  Serious: No
  Sender: FDA-Public Use
  Company Number: US-BEH-2020111428

PATIENT
  Age: 61 Year
  Sex: Female

DRUGS (17)
  1. ESTRADIOL. [Concomitant]
     Active Substance: ESTRADIOL
  2. ONDANSETRON [Concomitant]
     Active Substance: ONDANSETRON
  3. L-LYSINE [LYSINE] [Concomitant]
  4. SIMVASTATIN. [Concomitant]
     Active Substance: SIMVASTATIN
  5. HIZENTRA [Suspect]
     Active Substance: HUMAN IMMUNOGLOBULIN G
     Indication: IMMUNODEFICIENCY COMMON VARIABLE
     Dosage: 5 GRAM, QW
     Route: 058
     Dates: start: 20180313
  6. MELOXICAM. [Concomitant]
     Active Substance: MELOXICAM
  7. ALPRAZOLAM. [Concomitant]
     Active Substance: ALPRAZOLAM
  8. COLLAGEN [Concomitant]
     Active Substance: COLLAGEN
  9. VITAMIN C [Concomitant]
     Active Substance: ASCORBIC ACID
  10. BIOTIN [Concomitant]
     Active Substance: BIOTIN
  11. VITAMIN D3 [Concomitant]
     Active Substance: CHOLECALCIFEROL
  12. SUPER B-100 [AMINOBENZOIC ACID;BIOTIN;CALCIUM PANTOTHENATE;CHOLINE BIT [Concomitant]
  13. CARISOPRODOL. [Concomitant]
     Active Substance: CARISOPRODOL
  14. FISH OIL [Concomitant]
     Active Substance: FISH OIL
  15. HIZENTRA [Suspect]
     Active Substance: HUMAN IMMUNOGLOBULIN G
     Dosage: UNK
     Route: 058
  16. HIZENTRA [Suspect]
     Active Substance: HUMAN IMMUNOGLOBULIN G
     Dosage: UNK
     Route: 058
  17. CENTRUM FOR WOMEN [Concomitant]
     Active Substance: VITAMINS

REACTIONS (3)
  - Paraesthesia oral [Not Recovered/Not Resolved]
  - Weight decreased [Not Recovered/Not Resolved]
  - Asthenia [Not Recovered/Not Resolved]

NARRATIVE: CASE EVENT DATE: 201912
